FAERS Safety Report 6023540-0 (Version None)
Quarter: 2008Q4

REPORT INFORMATION
  Report Type: 
  Country: None (occurrence: None)
  Receive Date: 20081230
  Receipt Date: 20081224
  Transmission Date: 20090506
  Serious: Yes (Other)
  Sender: FDA-Public Use
  Company Number: PHHY2008AU31657

PATIENT
  Sex: Male

DRUGS (2)
  1. NEORAL [Suspect]
     Dosage: UNK
     Route: 048
  2. ANTIBIOTICS [Suspect]
     Dosage: UNK

REACTIONS (2)
  - EJACULATION DISORDER [None]
  - SEXUAL DYSFUNCTION [None]
